FAERS Safety Report 8933722 (Version 1)
Quarter: 2012Q4

REPORT INFORMATION
  Report Type: 
  Country: CO (occurrence: CO)
  Receive Date: 20121129
  Receipt Date: 20121129
  Transmission Date: 20130627
  Serious: Yes (Hospitalization)
  Sender: FDA-Public Use
  Company Number: CO-AMGEN-COLSP2012076551

PATIENT
  Age: 70 Year
  Sex: Female

DRUGS (4)
  1. ENBREL [Suspect]
     Indication: RHEUMATOID ARTHRITIS
     Dosage: 50 mg, 1x/day
     Route: 058
     Dates: start: 201011, end: 201111
  2. ENBREL [Suspect]
     Dosage: 50 mg, 1x/day
     Route: 058
     Dates: start: 201205, end: 20121108
  3. METHOTREXATE [Concomitant]
     Indication: RHEUMATOID ARTHRITIS
     Dosage: 6 tablets of 2.5 mg, weekly
     Route: 048
     Dates: start: 201205
  4. AMARYL [Concomitant]
     Indication: DIABETES MELLITUS
     Dosage: one tablet and a half of 4 mg, 1x/day
     Route: 065

REACTIONS (2)
  - Urinary tract infection [Recovering/Resolving]
  - Pain [Recovering/Resolving]
